FAERS Safety Report 10251416 (Version 1)
Quarter: 2014Q2

REPORT INFORMATION
  Report Type: Spontaneous
  Country: GB (occurrence: GB)
  Receive Date: 20140623
  Receipt Date: 20140623
  Transmission Date: 20141212
  Serious: Yes (Death)
  Sender: FDA-Public Use
  Company Number: GB-ROCHE-1422275

PATIENT
  Age: 66 Year
  Sex: Female

DRUGS (1)
  1. MIRCERA [Suspect]
     Indication: PRODUCT USED FOR UNKNOWN INDICATION
     Dosage: DOSE: 100MCG/0.3ML SOLUTION FOR INJECTION PRE-FILLED SYRINGE
     Route: 065

REACTIONS (1)
  - Death [Fatal]
